FAERS Safety Report 20549482 (Version 1)
Quarter: 2022Q1

REPORT INFORMATION
  Report Type: Spontaneous
  Country: US (occurrence: US)
  Receive Date: 20220303
  Receipt Date: 20220303
  Transmission Date: 20220424
  Serious: No
  Sender: FDA-Public Use
  Company Number: US-ALLERGAN-2123647US

PATIENT
  Sex: Female

DRUGS (1)
  1. RESTASIS [Suspect]
     Active Substance: CYCLOSPORINE
     Indication: Product used for unknown indication
     Dosage: 2 GTT, BID
     Dates: start: 20210603

REACTIONS (5)
  - Accidental exposure to product [Unknown]
  - Product dose omission issue [Unknown]
  - Product use complaint [Unknown]
  - Product delivery mechanism issue [Unknown]
  - Product closure issue [Unknown]
